FAERS Safety Report 14642251 (Version 1)
Quarter: 2018Q1

REPORT INFORMATION
  Report Type: Spontaneous
  Country: US (occurrence: US)
  Receive Date: 20180315
  Receipt Date: 20180315
  Transmission Date: 20180509
  Serious: Yes (Disabling)
  Sender: FDA-Public Use
  Company Number: None

PATIENT
  Age: 45 Year
  Sex: Male
  Weight: 109.8 kg

DRUGS (1)
  1. CIPRO [Suspect]
     Active Substance: CIPROFLOXACIN HYDROCHLORIDE
     Indication: TESTICULAR PAIN
     Route: 048
     Dates: start: 20180119, end: 20180129

REACTIONS (7)
  - Feeling abnormal [None]
  - Anxiety [None]
  - Paraesthesia [None]
  - Memory impairment [None]
  - Fatigue [None]
  - Back pain [None]
  - Feeling jittery [None]

NARRATIVE: CASE EVENT DATE: 20180119
